FAERS Safety Report 26067678 (Version 2)
Quarter: 2025Q4

REPORT INFORMATION
  Report Type: Spontaneous
  Country: US (occurrence: US)
  Receive Date: 20251120
  Receipt Date: 20251202
  Transmission Date: 20260117
  Serious: Yes (Life-Threatening, Hospitalization, Other)
  Sender: AUROBINDO
  Company Number: US-MLMSERVICE-20251029-PI691376-00029-1

PATIENT
  Age: 5 Year
  Sex: Female

DRUGS (3)
  1. ACETAMINOPHEN [Suspect]
     Active Substance: ACETAMINOPHEN
     Indication: Product used for unknown indication
     Dosage: UNK (INGESTED AN UNKNOWN QUANTITY OF ADULT-FORMULATION ACETAMINOPHEN OF UNSPECIFIED STRENGTH)
  2. VITAMIN K [Concomitant]
     Active Substance: PHYTONADIONE
     Indication: Product used for unknown indication
     Dosage: UNK
     Route: 065
  3. DEXTROSE [Concomitant]
     Active Substance: DEXTROSE MONOHYDRATE
     Indication: Product used for unknown indication
     Dosage: UNK
     Route: 065

REACTIONS (6)
  - Acute hepatic failure [Recovering/Resolving]
  - Encephalopathy [Recovered/Resolved]
  - Brain oedema [Recovered/Resolved]
  - Hypoglycaemia [Recovering/Resolving]
  - Coagulopathy [Recovering/Resolving]
  - Accidental overdose [Recovered/Resolved]
